FAERS Safety Report 12875447 (Version 1)
Quarter: 2016Q4

REPORT INFORMATION
  Report Type: Report from Study
  Country: BR (occurrence: BR)
  Receive Date: 20161024
  Receipt Date: 20161024
  Transmission Date: 20170207
  Serious: Yes (Other)
  Sender: FDA-Public Use
  Company Number: BR-ROCHE-1844987

PATIENT
  Sex: Male

DRUGS (2)
  1. XOLAIR [Suspect]
     Active Substance: OMALIZUMAB
     Indication: ASTHMA
     Dosage: 1 AMPOULE IN EACH ARM EVERY 15 DAYS
     Route: 058
     Dates: start: 20150902, end: 20160316
  2. ALENIA (BRAZIL) [Concomitant]
     Active Substance: BUDESONIDE\FORMOTEROL FUMARATE
     Indication: ASTHMA
     Dosage: 1 DF (12/400 MG), BID (2 ASPIRATIONS A DAY), (STARTED 5 YEARS AGO)
     Route: 055

REACTIONS (2)
  - Drug ineffective [Unknown]
  - Malaise [Unknown]
